FAERS Safety Report 8391636 (Version 11)
Quarter: 2013Q1

REPORT INFORMATION
  Report Type: Spontaneous
  Country: JP (occurrence: None)
  Receive Date: 20120123
  Receipt Date: 20130207
  Transmission Date: 20140127
  Serious: Yes (Life-Threatening, Hospitalization)
  Sender: FDA-Public Use
  Company Number: JP-2012-10217

PATIENT
  Age: 40 Year
  Sex: Male
  Weight: 100 kg

DRUGS (18)
  1. TOLVAPTAN [Suspect]
     Indication: CONGENITAL CYSTIC KIDNEY DISEASE
     Dosage: 90 MG, DAILY DOSE, ORAL
     Route: 048
     Dates: start: 20110309, end: 20120109
  2. TOLVAPTAN [Suspect]
     Dosage: 90 MG, DAILY DOSE, ORAL
     Route: 048
     Dates: start: 20110309, end: 20120109
  3. WYTENS (GUANABENZ ACETATE) [Concomitant]
  4. JUSO (SODIUM BICARBONATE) [Concomitant]
  5. URINOM (BENZBROMARONE) [Concomitant]
  6. DIOVAN [Concomitant]
  7. AMLODIPINE BESYLATE [Concomitant]
  8. OMEPRAZOLE [Concomitant]
  9. ACETAMINOPHEN [Concomitant]
  10. TRANEXAMIC ACID [Concomitant]
  11. BANAN [Concomitant]
  12. MUCODYNE (CARBOCISTEINE) [Concomitant]
  13. AZUNOL (SODIUM GUALENATE) [Concomitant]
  14. METHYCOOL (MECOBALAMIN) [Concomitant]
  15. COLCHICINE [Concomitant]
  16. ALLOPURINOL [Concomitant]
  17. URALYT (POTASSIUM CITRATE, SODIUM CITRATE ACID) [Concomitant]
  18. CARDENALIN (DOXAZOSIN MESILATE) [Concomitant]

REACTIONS (13)
  - Renal cyst infection [None]
  - Sepsis [None]
  - Arthralgia [None]
  - Abdominal distension [None]
  - Haematuria [None]
  - Blood pressure diastolic increased [None]
  - Coagulopathy [None]
  - Prothrombin time prolonged [None]
  - Activated partial thromboplastin time prolonged [None]
  - Fibrin degradation products increased [None]
  - Fibrin D dimer increased [None]
  - Aspartate aminotransferase increased [None]
  - Alanine aminotransferase increased [None]
